FAERS Safety Report 8933921 (Version 2)
Quarter: 2013Q1

REPORT INFORMATION
  Report Type: Spontaneous
  Country: US (occurrence: US)
  Receive Date: 20121129
  Receipt Date: 20130111
  Transmission Date: 20140127
  Serious: No
  Sender: FDA-Public Use
  Company Number: US-TEVA-372831USA

PATIENT
  Age: 64 Year
  Sex: Male
  Weight: 65.83 kg

DRUGS (3)
  1. AZILECT [Suspect]
     Indication: PARKINSON^S DISEASE
     Dosage: 1 MILLIGRAM DAILY;
     Route: 048
     Dates: start: 201101
  2. UROXATRAL [Concomitant]
  3. FINASTERIDE [Concomitant]

REACTIONS (3)
  - Dizziness postural [Not Recovered/Not Resolved]
  - Migraine [Not Recovered/Not Resolved]
  - Autonomic nervous system imbalance [Unknown]
